FAERS Safety Report 21576429 (Version 1)
Quarter: 2022Q4

REPORT INFORMATION
  Report Type: Spontaneous
  Country: RO (occurrence: RO)
  Receive Date: 20221110
  Receipt Date: 20221110
  Transmission Date: 20230113
  Serious: Yes (Hospitalization, Other)
  Sender: FDA-Public Use
  Company Number: RO-AstraZeneca-2022A353495

PATIENT
  Sex: Male

DRUGS (4)
  1. ROSUVASTATIN CALCIUM [Suspect]
     Active Substance: ROSUVASTATIN CALCIUM
     Indication: Product used for unknown indication
     Dosage: 40 MILLIGRAM, ONCE A DAY
     Route: 048
  2. TICAGRELOR [Suspect]
     Active Substance: TICAGRELOR
     Indication: Acute coronary syndrome
     Dosage: 90 MILLIGRAM, TWO TIMES A DAY
     Route: 048
  3. ASPIRIN [Concomitant]
     Active Substance: ASPIRIN
     Indication: Product used for unknown indication
     Dosage: 75 MILLIGRAM, ONCE A DAY
     Route: 065
  4. CANDESARTAN [Concomitant]
     Active Substance: CANDESARTAN
     Indication: Product used for unknown indication
     Dosage: 8 MILLIGRAM, ONCE A DAY
     Route: 065

REACTIONS (2)
  - Cardiac failure [Unknown]
  - Ill-defined disorder [Unknown]
